FAERS Safety Report 21517674 (Version 2)
Quarter: 2022Q4

REPORT INFORMATION
  Report Type: Report from Study
  Country: US (occurrence: None)
  Receive Date: 20221028
  Receipt Date: 20221216
  Transmission Date: 20230113
  Serious: Yes (Other)
  Sender: FDA-Public Use
  Company Number: US-Merck Healthcare KGaA-9359994

PATIENT
  Sex: Female

DRUGS (3)
  1. REBIF [Suspect]
     Active Substance: INTERFERON BETA-1A
     Indication: Multiple sclerosis
     Route: 058
     Dates: start: 20041002, end: 20151017
  2. REBIF [Suspect]
     Active Substance: INTERFERON BETA-1A
     Route: 058
     Dates: start: 20151110, end: 20170410
  3. REBIF [Suspect]
     Active Substance: INTERFERON BETA-1A
     Route: 058
     Dates: start: 20170508

REACTIONS (7)
  - Gastric disorder [Unknown]
  - Abnormal loss of weight [Unknown]
  - Muscle spasticity [Unknown]
  - Malaise [Unknown]
  - Tremor [Unknown]
  - Muscle spasms [Unknown]
  - Memory impairment [Unknown]
